FAERS Safety Report 7404179-9 (Version None)
Quarter: 2011Q2

REPORT INFORMATION
  Report Type: 
  Country: None (occurrence: None)
  Receive Date: 20110408
  Receipt Date: 20110309
  Transmission Date: 20111010
  Serious: Yes (Other)
  Sender: FDA-Public Use
  Company Number: US-BAYER-201039457NA

PATIENT
  Age: 23 Year
  Sex: Female

DRUGS (7)
  1. PRILOSEC [Concomitant]
     Indication: ABDOMINAL PAIN
     Dosage: UNK
     Dates: start: 20070101
  2. ULTRAM [Concomitant]
     Indication: DYSPEPSIA
     Dosage: UNK
     Dates: start: 20060101
  3. IBUPROFEN [Concomitant]
  4. NUVARING [Concomitant]
     Dosage: UNK
  5. YAZ [Suspect]
     Indication: PRODUCT USED FOR UNKNOWN INDICATION
     Route: 048
  6. PRILOSEC [Concomitant]
     Indication: VOMITING
  7. PRILOSEC [Concomitant]
     Indication: NAUSEA

REACTIONS (4)
  - CHOLESTEROSIS [None]
  - CHOLECYSTECTOMY [None]
  - CHOLELITHIASIS [None]
  - CHOLECYSTITIS CHRONIC [None]
